FAERS Safety Report 13164902 (Version 6)
Quarter: 2017Q4

REPORT INFORMATION
  Report Type: Spontaneous
  Country: US (occurrence: US)
  Receive Date: 20170130
  Receipt Date: 20171102
  Transmission Date: 20180320
  Serious: Yes (Hospitalization)
  Sender: FDA-Public Use
  Company Number: US-ACTELION-A-NJ2017-149148

PATIENT
  Age: 74 Year
  Sex: Male
  Weight: 76.19 kg

DRUGS (4)
  1. VELETRI [Suspect]
     Active Substance: EPOPROSTENOL
     Indication: PULMONARY ARTERIAL HYPERTENSION
     Dosage: 46 NG/KG, PER MIN
     Route: 042
  2. VELETRI [Suspect]
     Active Substance: EPOPROSTENOL
     Dosage: UNK
     Route: 042
     Dates: start: 20160908
  3. TRACLEER [Suspect]
     Active Substance: BOSENTAN
     Indication: PULMONARY ARTERIAL HYPERTENSION
     Dosage: 125 MG, BID
     Route: 048
     Dates: start: 20111228
  4. ADCIRCA [Concomitant]
     Active Substance: TADALAFIL

REACTIONS (10)
  - Aphasia [Unknown]
  - Atrial fibrillation [Unknown]
  - Pleural effusion [Unknown]
  - Oedema [Unknown]
  - Throat irritation [Unknown]
  - Diarrhoea [Unknown]
  - Weight decreased [Unknown]
  - Eating disorder [Unknown]
  - Pulmonary oedema [Unknown]
  - Pneumonia [Unknown]
